FAERS Safety Report 15744942 (Version 3)
Quarter: 2023Q1

REPORT INFORMATION
  Report Type: Spontaneous
  Country: GB (occurrence: GB)
  Receive Date: 20181220
  Receipt Date: 20230328
  Transmission Date: 20230417
  Serious: Yes (Other)
  Sender: FDA-Public Use
  Company Number: GB-SA-2018SA387646

PATIENT
  Age: 54 Year
  Sex: Female

DRUGS (1)
  1. ALEMTUZUMAB [Suspect]
     Active Substance: ALEMTUZUMAB
     Indication: Multiple sclerosis
     Dosage: UNK
     Route: 042
     Dates: start: 1995, end: 1995

REACTIONS (4)
  - Endocrine ophthalmopathy [Unknown]
  - Extraocular muscle disorder [Unknown]
  - Exophthalmos [Unknown]
  - Basedow^s disease [Unknown]

NARRATIVE: CASE EVENT DATE: 19970101
